FAERS Safety Report 5003877-4 (Version None)
Quarter: 2006Q2

REPORT INFORMATION
  Report Type: 
  Country: None (occurrence: None)
  Receive Date: 20060515
  Receipt Date: 20060502
  Transmission Date: 20061013
  Serious: Yes (Hospitalization)
  Sender: FDA-Public Use
  Company Number: 200610415BFR

PATIENT
  Age: 72 Year
  Sex: Female

DRUGS (4)
  1. MOXIFLOXACIN HYDROCHLORIDE [Suspect]
     Indication: DIABETIC FOOT INFECTION
     Dosage: 400 MG, QD, ORAL
     Route: 048
     Dates: start: 20050518, end: 20050614
  2. TARGOCID [Suspect]
     Indication: DIABETIC FOOT INFECTION
     Dosage: 600 MG, TOTAL DAILY, INTRAVENOUS
     Route: 042
     Dates: start: 20050518, end: 20050614
  3. FOSFOCINE [Concomitant]
  4. VANCOMYCIN [Concomitant]

REACTIONS (5)
  - BICYTOPENIA [None]
  - CYTOLYTIC HEPATITIS [None]
  - DERMATITIS EXFOLIATIVE [None]
  - DRUG RASH WITH EOSINOPHILIA AND SYSTEMIC SYMPTOMS [None]
  - HAEMOGLOBIN DECREASED [None]
